FAERS Safety Report 5144260-0 (Version None)
Quarter: 2006Q4

REPORT INFORMATION
  Report Type: 
  Country: None (occurrence: None)
  Receive Date: 20061102
  Receipt Date: 20061102
  Transmission Date: 20070319
  Serious: Yes (Life-Threatening)
  Sender: FDA-Public Use
  Company Number: None

PATIENT
  Age: 57 Year
  Sex: Female
  Weight: 88 kg

DRUGS (1)
  1. LEPIRUDIN INFUSION  0.4 MG/ ML BERLEX [Suspect]
     Dosage: 0.2 MG/KG -17.6 MG TOTAL NOW IV BOLUS
     Route: 040
     Dates: start: 20040416, end: 20040416

REACTIONS (5)
  - ACTIVATED PARTIAL THROMBOPLASTIN TIME PROLONGED [None]
  - CARDIO-RESPIRATORY ARREST [None]
  - CATHETER SITE HAEMORRHAGE [None]
  - INFUSION RELATED REACTION [None]
  - VENTRICULAR FIBRILLATION [None]
